FAERS Safety Report 9893564 (Version 1)
Quarter: 2014Q1

REPORT INFORMATION
  Report Type: Spontaneous
  Country: FR (occurrence: FR)
  Receive Date: 20140213
  Receipt Date: 20140213
  Transmission Date: 20141002
  Serious: Yes (Hospitalization, Other)
  Sender: FDA-Public Use
  Company Number: FR-ELI_LILLY_AND_COMPANY-FR201402000099

PATIENT
  Age: 38 Year
  Sex: Male

DRUGS (8)
  1. GEMZAR [Suspect]
     Indication: ADENOCARCINOMA PANCREAS
     Dosage: UNK UNK, UNKNOWN
     Route: 042
     Dates: start: 201207, end: 20130506
  2. GEMZAR [Suspect]
     Indication: METASTASES TO PERITONEUM
  3. GEMZAR [Suspect]
     Indication: METASTATIC NEOPLASM
  4. OXALIPLATIN [Suspect]
     Indication: ADENOCARCINOMA PANCREAS
     Dosage: UNK UNK, UNKNOWN
     Route: 065
     Dates: start: 201207, end: 201212
  5. OXALIPLATIN [Suspect]
     Indication: METASTASES TO PERITONEUM
  6. OXALIPLATIN [Suspect]
     Indication: METASTATIC NEOPLASM
  7. DETICENE [Concomitant]
  8. 5 FU [Concomitant]

REACTIONS (9)
  - Deep vein thrombosis [Unknown]
  - Renal failure acute [Unknown]
  - Thrombocytosis [Not Recovered/Not Resolved]
  - Leukocytosis [Not Recovered/Not Resolved]
  - Pyrexia [Not Recovered/Not Resolved]
  - C-reactive protein increased [Not Recovered/Not Resolved]
  - Blood creatinine increased [Not Recovered/Not Resolved]
  - Proteinuria [Not Recovered/Not Resolved]
  - Malignant neoplasm progression [Unknown]
